FAERS Safety Report 6660331-1 (Version None)
Quarter: 2010Q1

REPORT INFORMATION
  Report Type: 
  Country: None (occurrence: None)
  Receive Date: 20100331
  Receipt Date: 20100318
  Transmission Date: 20100710
  Serious: Yes (Other)
  Sender: FDA-Public Use
  Company Number: GB-RANBAXY-2010RR-32744

PATIENT
  Age: 63 Year
  Sex: Male

DRUGS (7)
  1. FENOFIBRATE [Suspect]
     Indication: HYPERCHOLESTEROLAEMIA
     Dosage: 200 MG, UNK
     Route: 048
     Dates: start: 20091005, end: 20100208
  2. ASPIRIN [Concomitant]
     Dosage: 75 MG, UNK
     Route: 048
     Dates: start: 20070101
  3. BISOPROLOL [Concomitant]
     Dosage: 10 MG, UNK
     Route: 048
     Dates: start: 20070101
  4. CITALOPRAM HYDROBROMIDE [Concomitant]
     Dosage: 40 MG, UNK
     Route: 048
     Dates: start: 20070101
  5. EZETIMIBE [Concomitant]
     Dosage: 10 MG, QD
     Dates: start: 20070101
  6. LISINOPRIL [Concomitant]
     Dosage: 10 MG, UNK
     Route: 048
     Dates: start: 20070101
  7. QUESTRAN [Concomitant]
     Dosage: 2 DF, BID
     Route: 048
     Dates: start: 20070101

REACTIONS (2)
  - PHOTOSENSITIVITY REACTION [None]
  - SKIN EXFOLIATION [None]
